FAERS Safety Report 8581130-X (Version None)
Quarter: 2012Q3

REPORT INFORMATION
  Report Type: 
  Country: None (occurrence: None)
  Receive Date: 20120727
  Receipt Date: 20120713
  Transmission Date: 20120928
  Serious: Yes (Hospitalization, Other)
  Sender: FDA-Public Use
  Company Number: JPI-P-022734

PATIENT
  Age: 63 Year
  Sex: Male
  Weight: 68.0396 kg

DRUGS (12)
  1. METFORMIN HYDROCHLORIDE [Suspect]
     Indication: GLUCOSE TOLERANCE IMPAIRED
     Dosage: 2000 MG (1000 MG, 2 IN 1 D)
     Dates: start: 20080101
  2. LISINOPRIL [Concomitant]
  3. XYREM [Suspect]
     Indication: CHRONIC FATIGUE SYNDROME
     Dosage: 4, 5 GM (2.25 GM, 2 IN 1 D), ORAL
  4. ATENOLOL [Suspect]
     Indication: BLOOD PRESSURE INCREASED
  5. XYREM [Suspect]
     Indication: INSOMNIA
     Dosage: UNK, ORAL; 9 GM (4.5 GM, 2 IN 1 D), ORAL
     Route: 048
     Dates: start: 20031003
  6. XYREM [Suspect]
     Indication: PAIN
     Dosage: UNK, ORAL; 9 GM (4.5 GM, 2 IN 1 D), ORAL
     Route: 048
     Dates: start: 20031003
  7. XYREM [Suspect]
     Indication: POST-TRAUMATIC STRESS DISORDER
     Dosage: UNK, ORAL; 9 GM (4.5 GM, 2 IN 1 D), ORAL
     Route: 048
     Dates: start: 20031003
  8. XYREM [Suspect]
     Indication: CHRONIC FATIGUE SYNDROME
     Dosage: UNK, ORAL; 9 GM (4.5 GM, 2 IN 1 D), ORAL
     Route: 048
     Dates: start: 20031003
  9. XYREM [Suspect]
     Indication: INSOMNIA
     Dosage: UNK, ORAL; 9 GM (4.5 GM, 2 IN 1 D), ORAL
     Route: 048
     Dates: start: 20030101, end: 20030101
  10. XYREM [Suspect]
     Indication: PAIN
     Dosage: UNK, ORAL; 9 GM (4.5 GM, 2 IN 1 D), ORAL
     Route: 048
     Dates: start: 20030101, end: 20030101
  11. XYREM [Suspect]
     Indication: POST-TRAUMATIC STRESS DISORDER
     Dosage: UNK, ORAL; 9 GM (4.5 GM, 2 IN 1 D), ORAL
     Route: 048
     Dates: start: 20030101, end: 20030101
  12. XYREM [Suspect]
     Indication: CHRONIC FATIGUE SYNDROME
     Dosage: UNK, ORAL; 9 GM (4.5 GM, 2 IN 1 D), ORAL
     Route: 048
     Dates: start: 20030101, end: 20030101

REACTIONS (5)
  - ANXIETY DISORDER [None]
  - BLOOD PRESSURE DECREASED [None]
  - HAEMORRHAGIC STROKE [None]
  - WEIGHT DECREASED [None]
  - GLUCOSE TOLERANCE IMPAIRED [None]
